FAERS Safety Report 10468367 (Version 2)
Quarter: 2014Q3

REPORT INFORMATION
  Report Type: Spontaneous
  Country: US (occurrence: US)
  Receive Date: 20140922
  Receipt Date: 20140922
  Transmission Date: 20150326
  Serious: No
  Sender: FDA-Public Use
  Company Number: US-ALLERGAN-1413235US

PATIENT
  Age: 29 Year
  Sex: Male

DRUGS (2)
  1. ALREX [Concomitant]
     Active Substance: LOTEPREDNOL ETABONATE
     Dosage: UNK UNK, PRN
     Route: 047
  2. LASTACAFT [Suspect]
     Active Substance: ALCAFTADINE
     Indication: CONJUNCTIVITIS ALLERGIC
     Dosage: 2 GTT, UNK
     Route: 047

REACTIONS (1)
  - Product taste abnormal [Unknown]

NARRATIVE: CASE EVENT DATE: 2013
